FAERS Safety Report 13835637 (Version 1)
Quarter: 2017Q3

REPORT INFORMATION
  Report Type: Spontaneous
  Country: US (occurrence: US)
  Receive Date: 20170804
  Receipt Date: 20170804
  Transmission Date: 20171127
  Serious: Yes (Death)
  Sender: FDA-Public Use
  Company Number: US-KERYX BIOPHARMA UK LTD-2017US003103

PATIENT
  Age: 69 Year
  Sex: Male

DRUGS (1)
  1. AURYXIA [Suspect]
     Active Substance: TETRAFERRIC TRICITRATE DECAHYDRATE
     Indication: HYPERPHOSPHATAEMIA
     Dosage: 3 G (3 TABLETS), QD
     Dates: start: 20170127, end: 20170726

REACTIONS (1)
  - Death [Fatal]

NARRATIVE: CASE EVENT DATE: 20170726
